FAERS Safety Report 26116342 (Version 1)
Quarter: 2025Q4

REPORT INFORMATION
  Report Type: Spontaneous
  Country: US (occurrence: US)
  Receive Date: 20251203
  Receipt Date: 20251203
  Transmission Date: 20260117
  Serious: Yes (Other)
  Sender: SANOFI AVENTIS
  Company Number: US-SA-2025SA360468

PATIENT
  Sex: Female
  Weight: 95 kg

DRUGS (1)
  1. KEVZARA [Suspect]
     Active Substance: SARILUMAB
     Indication: Rheumatoid arthritis
     Dosage: 200 MG, QOW
     Route: 058

REACTIONS (8)
  - Systemic lupus erythematosus [Unknown]
  - Arthralgia [Unknown]
  - Inflammation [Unknown]
  - Nerve compression [Not Recovered/Not Resolved]
  - Neuralgia [Not Recovered/Not Resolved]
  - Skin ulcer [Unknown]
  - Mouth ulceration [Unknown]
  - Acne [Unknown]
